FAERS Safety Report 9106620 (Version 2)
Quarter: 2013Q1

REPORT INFORMATION
  Report Type: Spontaneous
  Country: BR (occurrence: BR)
  Receive Date: 20130221
  Receipt Date: 20130326
  Transmission Date: 20140127
  Serious: Yes (Other)
  Sender: FDA-Public Use
  Company Number: PHHY2013BR016840

PATIENT
  Age: 66 Year
  Sex: Female

DRUGS (1)
  1. DIOVAN AMLO FIX [Suspect]
     Indication: HYPERTENSION
     Dosage: 1 DF (160 MG VALS/ 5 MG AMLO), DAILY
     Route: 048
     Dates: start: 20130209, end: 20130215

REACTIONS (4)
  - Fluid retention [Recovered/Resolved]
  - Local swelling [Recovered/Resolved]
  - Blood pressure diastolic decreased [Recovered/Resolved]
  - Blood cholesterol increased [Recovering/Resolving]
